FAERS Safety Report 8107403-2 (Version None)
Quarter: 2012Q1

REPORT INFORMATION
  Report Type: 
  Country: None (occurrence: None)
  Receive Date: 20120202
  Receipt Date: 20120130
  Transmission Date: 20120608
  Serious: Yes (Hospitalization)
  Sender: FDA-Public Use
  Company Number: DE-PFIZER INC-2010081039

PATIENT
  Age: 77 Year
  Sex: Female

DRUGS (10)
  1. RAMIPRIL [Suspect]
     Indication: HYPERTENSION
     Dosage: 5 MG, 2X/DAY
  2. OLANZAPINE [Concomitant]
     Dosage: 5 MG, DAILY
  3. BAYOTENSIN AKUT [Suspect]
     Indication: HYPERTENSION
     Dosage: 5 MG, UNK
     Route: 065
  4. PROTHIPENDYL [Suspect]
     Indication: INITIAL INSOMNIA
  5. VALPROIC ACID [Concomitant]
     Dosage: 900 MG, DAILY
  6. PROTHIPENDYL [Suspect]
     Indication: SLEEP DISORDER
     Dosage: 80 MG, 1X/DAY
     Route: 065
  7. PREGABALIN [Concomitant]
     Dosage: 150 MG, DAILY
  8. AMLODIPINE BESYLATE [Suspect]
     Indication: HYPERTENSION
     Dosage: 5 MG, 1X/DAY
     Route: 065
  9. BISOPROLOL FUMARATE [Suspect]
     Indication: HYPERTENSION
     Dosage: 5 MG, 1X/DAY
  10. HYDROCHLOROTHIAZIDE [Suspect]
     Indication: HYPERTENSION
     Dosage: 12.5 MG, DAILY

REACTIONS (1)
  - NON-DIPPING [None]
